FAERS Safety Report 4955060-6 (Version None)
Quarter: 2006Q1

REPORT INFORMATION
  Report Type: 
  Country: None (occurrence: None)
  Receive Date: 20060322
  Receipt Date: 20060303
  Transmission Date: 20060701
  Serious: Yes (Hospitalization, Other)
  Sender: FDA-Public Use
  Company Number: USA050394352

PATIENT
  Age: 76 Year
  Sex: Female

DRUGS (5)
  1. FORTEO [Suspect]
     Indication: OSTEOPOROSIS
     Dosage: 20 UG, DAILY (1/D)
     Dates: start: 20040309
  2. FORTEO PEN (FORTEO PEN) PEN, DISPOSABLE [Concomitant]
  3. LIPITOR [Concomitant]
  4. LOTREL (AMLODIPINE, DENAZEPRIL HYDROCHLORIDE) [Concomitant]
  5. ASPIRIN [Concomitant]

REACTIONS (5)
  - CHEST PAIN [None]
  - CORONARY ARTERY OCCLUSION [None]
  - FATIGUE [None]
  - HAEMOGLOBIN DECREASED [None]
  - PHARMACEUTICAL PRODUCT COMPLAINT [None]
